FAERS Safety Report 6900162-8 (Version None)
Quarter: 2010Q3

REPORT INFORMATION
  Report Type: 
  Country: None (occurrence: None)
  Receive Date: 20100803
  Receipt Date: 20100727
  Transmission Date: 20110219
  Serious: No
  Sender: FDA-Public Use
  Company Number: US-MYLANLABS-2010S1013427

PATIENT
  Age: 26 Year
  Sex: Female

DRUGS (4)
  1. AMNESTEEM [Suspect]
     Route: 048
     Dates: start: 20100127
  2. CLARAVIS [Suspect]
     Route: 048
  3. AMNESTEEM [Suspect]
     Route: 048
     Dates: end: 20100707
  4. ORAL CONTRACEPTIVE NOS [Concomitant]
     Route: 048

REACTIONS (2)
  - PREGNANCY TEST FALSE POSITIVE [None]
  - VAGINAL HAEMORRHAGE [None]
